FAERS Safety Report 5188784-9 (Version None)
Quarter: 2006Q4

REPORT INFORMATION
  Report Type: 
  Country: None (occurrence: None)
  Receive Date: 20061215
  Receipt Date: 20061211
  Transmission Date: 20070319
  Serious: Yes (Death, Hospitalization)
  Sender: FDA-Public Use
  Company Number: CLOF-10401

PATIENT
  Age: 68 Year
  Sex: Female

DRUGS (20)
  1. CLOFARABINE [Suspect]
     Indication: ACUTE MYELOID LEUKAEMIA
     Dates: start: 20061017, end: 20061021
  2. CLOFARABINE [Suspect]
     Indication: ACUTE MYELOID LEUKAEMIA
     Dosage: 40 MG/M2 QD IV
     Route: 042
     Dates: start: 20061102, end: 20061106
  3. HIDAC [Suspect]
     Indication: ACUTE MYELOID LEUKAEMIA
     Dates: start: 20061017, end: 20061020
  4. ACYCLOVIR [Concomitant]
  5. AMILORIDE HYDROCHLORIDE [Concomitant]
  6. ABELCET [Concomitant]
  7. TYLENOL [Concomitant]
  8. BENADRYL [Concomitant]
  9. HYDROCORTISONE [Concomitant]
  10. AZACTAM [Concomitant]
  11. CALCIUM CARBONATE [Concomitant]
  12. ZYRTEC [Concomitant]
  13. CLONAZEPAM [Concomitant]
  14. ZOFRAN [Concomitant]
  15. PROTONIX [Concomitant]
  16. SODIUM CITRATE [Concomitant]
  17. VANCOMYCIN [Concomitant]
  18. HYDRALAZINE HCL [Concomitant]
  19. HYPERAL [Concomitant]
  20. BICARBONATE POTASSIUM [Concomitant]

REACTIONS (33)
  - ALOPECIA [None]
  - CHILLS [None]
  - CONFUSIONAL STATE [None]
  - DECREASED APPETITE [None]
  - DEHYDRATION [None]
  - DIARRHOEA [None]
  - FEBRILE NEUTROPENIA [None]
  - GENERAL PHYSICAL HEALTH DETERIORATION [None]
  - HAEMANGIOMA [None]
  - HYPOKALAEMIA [None]
  - HYPOMAGNESAEMIA [None]
  - LIP DISORDER [None]
  - METABOLIC ACIDOSIS [None]
  - MUCOSAL INFLAMMATION [None]
  - NAUSEA [None]
  - NERVOUS SYSTEM DISORDER [None]
  - NEUROTOXICITY [None]
  - NEUTROPENIA [None]
  - OEDEMA PERIPHERAL [None]
  - PAIN IN EXTREMITY [None]
  - PANCYTOPENIA [None]
  - PETECHIAE [None]
  - PYREXIA [None]
  - RALES [None]
  - RASH [None]
  - REFUSAL OF TREATMENT BY RELATIVE [None]
  - RENAL FAILURE [None]
  - RENAL IMPAIRMENT [None]
  - SCAB [None]
  - SPLENIC LESION [None]
  - TACHYCARDIA [None]
  - TREMOR [None]
  - WHEEZING [None]
